FAERS Safety Report 18691203 (Version 1)
Quarter: 2021Q1

REPORT INFORMATION
  Report Type: Other
  Country: GB (occurrence: GB)
  Receive Date: 20210101
  Receipt Date: 20210101
  Transmission Date: 20210419
  Serious: Yes (Death)
  Sender: FDA-Public Use
  Company Number: GB-ROCHE-2741897

PATIENT

DRUGS (1)
  1. RITUXIMAB. [Suspect]
     Active Substance: RITUXIMAB
     Indication: STEM CELL TRANSPLANT
     Route: 065

REACTIONS (3)
  - Septic shock [Fatal]
  - Cryptosporidiosis infection [Fatal]
  - Encephalopathy [Fatal]
